FAERS Safety Report 6722786-3 (Version None)
Quarter: 2010Q2

REPORT INFORMATION
  Report Type: 
  Country: None (occurrence: None)
  Receive Date: 20100512
  Receipt Date: 20100512
  Transmission Date: 20101027
  Serious: Yes (Hospitalization)
  Sender: FDA-Public Use
  Company Number: None

PATIENT
  Sex: Female
  Weight: 26.5 kg

DRUGS (1)
  1. VALPROIC ACID [Suspect]
     Indication: GRAND MAL CONVULSION
     Dosage: 250-750 MG DAILY PO
     Route: 048
     Dates: start: 20070212, end: 20100402

REACTIONS (2)
  - LETHARGY [None]
  - PANCREATITIS ACUTE [None]
